FAERS Safety Report 18289422 (Version 1)
Quarter: 2020Q3

REPORT INFORMATION
  Report Type: Spontaneous
  Country: US (occurrence: US)
  Receive Date: 20200921
  Receipt Date: 20200921
  Transmission Date: 20201103
  Serious: Yes (Hospitalization)
  Sender: FDA-Public Use
  Company Number: None

PATIENT
  Age: 59 Year
  Sex: Male

DRUGS (1)
  1. EVEROLIMUS. [Suspect]
     Active Substance: EVEROLIMUS
     Indication: LYMPHOMA
     Route: 048
     Dates: start: 20200203

REACTIONS (2)
  - Back pain [None]
  - Therapy interrupted [None]

NARRATIVE: CASE EVENT DATE: 20200909
